FAERS Safety Report 14035239 (Version 2)
Quarter: 2018Q1

REPORT INFORMATION
  Report Type: Spontaneous
  Country: US (occurrence: US)
  Receive Date: 20171003
  Receipt Date: 20180102
  Transmission Date: 20180508
  Serious: No
  Sender: FDA-Public Use
  Company Number: US-GALDERMA-US17007400

PATIENT
  Age: 42 Year
  Sex: Female

DRUGS (5)
  1. CETAPHIL REDNESS RELIEVING DAILY FACIAL MOISTURIZER WITH SUNCREEN SPF 20 [Suspect]
     Active Substance: TITANIUM DIOXIDE\ZINC OXIDE
     Indication: PRODUCT USED FOR UNKNOWN INDICATION
     Route: 061
     Dates: start: 20170810
  2. SKINCEUTICALS PHYTO CORRECTIVE GEL [Concomitant]
     Dates: start: 20170810, end: 20170823
  3. ACTICLATE [Concomitant]
     Active Substance: DOXYCYCLINE HYCLATE
     Dates: start: 20170810
  4. SOOLANTRA [Suspect]
     Active Substance: IVERMECTIN
     Indication: ROSACEA
     Dosage: 1%
     Route: 061
     Dates: start: 20170810, end: 20170823
  5. ELTA MD CLEAR SUNSCREEN [Concomitant]
     Dates: start: 20170810, end: 20170823

REACTIONS (5)
  - Dermatitis contact [Recovering/Resolving]
  - Erythema [Recovering/Resolving]
  - Condition aggravated [Recovering/Resolving]
  - Skin exfoliation [Recovering/Resolving]
  - Dry skin [Recovering/Resolving]

NARRATIVE: CASE EVENT DATE: 20170817
